FAERS Safety Report 8324871-1 (Version None)
Quarter: 2012Q2

REPORT INFORMATION
  Report Type: 
  Country: None (occurrence: None)
  Receive Date: 20120501
  Receipt Date: 20120427
  Transmission Date: 20120825
  Serious: No
  Sender: FDA-Public Use
  Company Number: US-PFIZER INC-2012105257

PATIENT
  Sex: Female
  Weight: 102 kg

DRUGS (1)
  1. NICOTROL [Suspect]
     Indication: SMOKING CESSATION THERAPY
     Dosage: 10 MG, 6X/DAY
     Dates: start: 20120424, end: 20120427

REACTIONS (3)
  - MALAISE [None]
  - VOMITING [None]
  - VISION BLURRED [None]
